FAERS Safety Report 21401808 (Version 1)
Quarter: 2022Q3

REPORT INFORMATION
  Report Type: Spontaneous
  Country: US (occurrence: None)
  Receive Date: 20220930
  Receipt Date: 20220930
  Transmission Date: 20221027
  Serious: No
  Sender: FDA-Public Use
  Company Number: None

PATIENT
  Age: 71 Year
  Sex: Female

DRUGS (2)
  1. FLUOCINOLONE [Suspect]
     Active Substance: FLUOCINOLONE
     Indication: Psoriasis
     Dosage: FREQUENCY : DAILY;?
     Route: 061
     Dates: start: 202207
  2. KETOCONAZOLE [Suspect]
     Active Substance: KETOCONAZOLE
     Indication: Psoriasis
     Dosage: FREQUENCY : DAILY;?
     Route: 061

REACTIONS (1)
  - Emergency care [None]
